FAERS Safety Report 12506479 (Version 2)
Quarter: 2016Q4

REPORT INFORMATION
  Report Type: Report from Study
  Country: US (occurrence: US)
  Receive Date: 20160628
  Receipt Date: 20161004
  Transmission Date: 20170207
  Serious: Yes (Hospitalization, Other)
  Sender: FDA-Public Use
  Company Number: US-ACTELION-A-NJ2016-138074

PATIENT
  Age: 67 Year
  Sex: Female

DRUGS (1)
  1. OPSUMIT [Suspect]
     Active Substance: MACITENTAN
     Indication: PULMONARY ARTERIAL HYPERTENSION
     Dosage: 10 MG, QD
     Route: 048
     Dates: start: 20160302

REACTIONS (6)
  - Transfusion [Unknown]
  - Post procedural complication [Unknown]
  - Mobility decreased [Not Recovered/Not Resolved]
  - Asthenia [Unknown]
  - Arterial haemorrhage [Unknown]
  - Gastrointestinal haemorrhage [Not Recovered/Not Resolved]
